FAERS Safety Report 6086185-2 (Version None)
Quarter: 2009Q1

REPORT INFORMATION
  Report Type: 
  Country: None (occurrence: None)
  Receive Date: 20090220
  Receipt Date: 20090217
  Transmission Date: 20090719
  Serious: Yes (Hospitalization)
  Sender: FDA-Public Use
  Company Number: JP-EISAI MEDICAL RESEARCH-E2090-00655-SPO-JP

PATIENT
  Sex: Female

DRUGS (4)
  1. EXCEGRAN [Suspect]
     Indication: EPILEPSY
     Route: 048
     Dates: start: 20080804, end: 20080903
  2. PREDONINE [Concomitant]
     Indication: BRAIN NEOPLASM
     Dates: start: 20080804, end: 20080809
  3. PREDONINE [Concomitant]
     Route: 048
     Dates: start: 20080810, end: 20080831
  4. GLYCEROL 2.6% [Concomitant]
     Indication: BRAIN NEOPLASM
     Dates: start: 20080804, end: 20080809

REACTIONS (1)
  - RASH [None]
